FAERS Safety Report 10690502 (Version 1)
Quarter: 2015Q1

REPORT INFORMATION
  Report Type: Spontaneous
  Country: CH (occurrence: None)
  Receive Date: 20150102
  Receipt Date: 20150102
  Transmission Date: 20150720
  Serious: Yes (Death)
  Sender: FDA-Public Use
  Company Number: CH-ZYDUS-006119

PATIENT
  Age: 84 Year

DRUGS (3)
  1. GLYCOPYRROLATE. [Suspect]
     Active Substance: GLYCOPYRROLATE
  2. OCTREOTIDE [Suspect]
     Active Substance: OCTREOTIDE
  3. RISPERIDONE. [Suspect]
     Active Substance: RISPERIDONE

REACTIONS (3)
  - Bacterial infection [None]
  - Dry mouth [None]
  - Parotitis [None]
